FAERS Safety Report 17504125 (Version 1)
Quarter: 2020Q1

REPORT INFORMATION
  Report Type: Report from Study
  Country: IN (occurrence: IN)
  Receive Date: 20200305
  Receipt Date: 20200305
  Transmission Date: 20200409
  Serious: Yes (Other)
  Sender: FDA-Public Use
  Company Number: NVSC2020IN063129

PATIENT
  Age: 52 Year
  Sex: Male
  Weight: 69 kg

DRUGS (3)
  1. TENDIA [Concomitant]
     Indication: DIABETES MELLITUS
     Dosage: UNK
     Route: 048
  2. GALVUS MET [Suspect]
     Active Substance: METFORMIN HYDROCHLORIDE\VILDAGLIPTIN
     Indication: DIABETES MELLITUS
     Dosage: 50/500(1-0-1,PRE MEAL),SINCE 3 YEARS
     Route: 048
  3. GALVUS MET [Suspect]
     Active Substance: METFORMIN HYDROCHLORIDE\VILDAGLIPTIN
     Dosage: UNK
     Route: 065

REACTIONS (5)
  - Hyperglycaemia [Unknown]
  - Deep vein thrombosis [Not Recovered/Not Resolved]
  - Neuralgia [Not Recovered/Not Resolved]
  - Product dose omission [Unknown]
  - Fatigue [Not Recovered/Not Resolved]

NARRATIVE: CASE EVENT DATE: 20200121
